FAERS Safety Report 25489439 (Version 1)
Quarter: 2025Q2

REPORT INFORMATION
  Report Type: Spontaneous
  Country: US (occurrence: US)
  Receive Date: 20250627
  Receipt Date: 20250627
  Transmission Date: 20250716
  Serious: No
  Sender: ROCHE
  Company Number: US-ROCHE-10000279161

PATIENT
  Age: 63 Year
  Sex: Female

DRUGS (15)
  1. XOLAIR [Suspect]
     Active Substance: OMALIZUMAB
     Indication: Asthma
     Route: 058
     Dates: start: 20250325, end: 20250625
  2. XOLAIR [Suspect]
     Active Substance: OMALIZUMAB
  3. FLUTICASONE [Concomitant]
     Active Substance: FLUTICASONE
     Dosage: 50 MCG
  4. LORATADINE [Concomitant]
     Active Substance: LORATADINE
     Route: 048
  5. ALBUTEROL SULFATE [Concomitant]
     Active Substance: ALBUTEROL SULFATE
  6. ATROVENT [Concomitant]
     Active Substance: IPRATROPIUM BROMIDE
     Dosage: 2 SPRAYS IN EACH NOSTRIL
  7. OLOPATADINE [Concomitant]
     Active Substance: OLOPATADINE
     Dosage: 665 MCG
  8. MONTELUKAST [Concomitant]
     Active Substance: MONTELUKAST
     Dosage: AT BEDTIME
     Route: 048
  9. TRELEGY ELLIPTA [Concomitant]
     Active Substance: FLUTICASONE FUROATE\UMECLIDINIUM BROMIDE\VILANTEROL TRIFENATATE
     Route: 048
  10. AMMONIUM LACTATE [Concomitant]
     Active Substance: AMMONIUM LACTATE
  11. VALIUM [Concomitant]
     Active Substance: DIAZEPAM
  12. CYPROHEPTADINE [Concomitant]
     Active Substance: CYPROHEPTADINE
  13. CYCLOBENZAPRINE [Concomitant]
     Active Substance: CYCLOBENZAPRINE
  14. TYRVAYA [Concomitant]
     Active Substance: VARENICLINE TARTRATE
  15. PAROXETINE HYDROCHLORIDE [Concomitant]
     Active Substance: PAROXETINE HYDROCHLORIDE

REACTIONS (1)
  - Alopecia [Unknown]
